FAERS Safety Report 7300468-7 (Version None)
Quarter: 2011Q1

REPORT INFORMATION
  Report Type: 
  Country: None (occurrence: None)
  Receive Date: 20110217
  Receipt Date: 20110211
  Transmission Date: 20110831
  Serious: Yes (Hospitalization, Other)
  Sender: FDA-Public Use
  Company Number: US-AMGEN-USASP2011008231

PATIENT
  Age: 78 Year
  Sex: Female

DRUGS (3)
  1. OMEPRAZOLE [Concomitant]
  2. PROLIA [Suspect]
     Indication: OSTEOPOROSIS POSTMENOPAUSAL
     Dosage: 60 MG, Q6MO
     Dates: start: 20110101
  3. ZANTAC                             /00550801/ [Concomitant]

REACTIONS (7)
  - BACK PAIN [None]
  - ARTHRALGIA [None]
  - DISORIENTATION [None]
  - DELUSION [None]
  - CACHEXIA [None]
  - GENERAL PHYSICAL CONDITION ABNORMAL [None]
  - BLOOD CALCIUM DECREASED [None]
